FAERS Safety Report 8104011-4 (Version None)
Quarter: 2012Q1

REPORT INFORMATION
  Report Type: 
  Country: None (occurrence: None)
  Receive Date: 20120201
  Receipt Date: 20120123
  Transmission Date: 20120608
  Serious: Yes (Hospitalization)
  Sender: FDA-Public Use
  Company Number: US-BAYER-2011-040677

PATIENT
  Age: 29 Year
  Sex: Female
  Weight: 108.84 kg

DRUGS (6)
  1. YASMIN [Suspect]
     Indication: PREMENSTRUAL SYNDROME
     Dosage: UNK
     Dates: start: 20080501, end: 20110101
  2. YASMIN [Suspect]
     Indication: DYSMENORRHOEA
  3. DROSPIRENONE AND ETHINYL ESTRADIOL [Suspect]
     Indication: PREMENSTRUAL SYNDROME
     Dosage: UNK
     Dates: start: 20080501, end: 20110101
  4. YASMIN [Suspect]
     Indication: MENORRHAGIA
  5. DROSPIRENONE AND ETHINYL ESTRADIOL [Suspect]
     Indication: MENORRHAGIA
  6. DROSPIRENONE AND ETHINYL ESTRADIOL [Suspect]
     Indication: DYSMENORRHOEA

REACTIONS (12)
  - ABDOMINAL DISTENSION [None]
  - ANXIETY [None]
  - FEAR [None]
  - DYSPEPSIA [None]
  - FLATULENCE [None]
  - CONSTIPATION [None]
  - DEPRESSION [None]
  - GALLBLADDER DISORDER [None]
  - ABDOMINAL PAIN [None]
  - DIARRHOEA [None]
  - EATING DISORDER [None]
  - PAIN [None]
